FAERS Safety Report 5765598-X (Version None)
Quarter: 2008Q2

REPORT INFORMATION
  Report Type: 
  Country: None (occurrence: None)
  Receive Date: 20080606
  Receipt Date: 20080606
  Transmission Date: 20081010
  Serious: Yes (Hospitalization)
  Sender: FDA-Public Use
  Company Number: None

PATIENT
  Sex: Female
  Weight: 83.66 kg

DRUGS (7)
  1. CISPLATIN [Suspect]
     Dosage: 97 MG
  2. DOXORUBICIN HYDROCHLORIDE [Suspect]
     Dosage: 90 MG
  3. G-CSF (FILGRASTIM, AMGEN) [Suspect]
     Dosage: 480 MCG
  4. TAXOL [Suspect]
     Dosage: 310 MG
  5. DIOVAN [Concomitant]
  6. GLIMEPIRIDE [Concomitant]
  7. METFORMIN [Concomitant]

REACTIONS (9)
  - ACUTE ENDOCARDITIS [None]
  - ANAEMIA [None]
  - BACTERIAL INFECTION [None]
  - CATHETER RELATED INFECTION [None]
  - CATHETER SITE PAIN [None]
  - CHILLS [None]
  - DEEP VEIN THROMBOSIS [None]
  - HYPERHIDROSIS [None]
  - PNEUMONIA [None]
